FAERS Safety Report 5755385-0 (Version None)
Quarter: 2008Q2

REPORT INFORMATION
  Report Type: 
  Country: None (occurrence: None)
  Receive Date: 20080602
  Receipt Date: 20080520
  Transmission Date: 20081010
  Serious: Yes (Death)
  Sender: FDA-Public Use
  Company Number: FR-ROCHE-565394

PATIENT
  Sex: Male

DRUGS (9)
  1. RIVOTRIL [Suspect]
     Route: 048
  2. RIVOTRIL [Suspect]
     Route: 048
  3. RIVOTRIL [Suspect]
     Route: 048
  4. AMITRIPTYLINE HCL [Suspect]
     Indication: DRUG USE FOR UNKNOWN INDICATION
     Route: 048
     Dates: start: 20060125
  5. AMITRIPTYLINE HCL [Suspect]
     Route: 048
  6. EPITOMAX [Suspect]
     Route: 048
     Dates: start: 20071012
  7. TYSABRI [Suspect]
     Indication: MULTIPLE SCLEROSIS
     Dosage: FORM: INJECTABLE SOLUTION
     Route: 042
     Dates: start: 20070914, end: 20080229
  8. SOLU-MEDROL [Concomitant]
     Route: 040
  9. AVONEX [Concomitant]

REACTIONS (1)
  - DEATH [None]
